FAERS Safety Report 9509586 (Version 1)
Quarter: 2013Q3

REPORT INFORMATION
  Report Type: Spontaneous
  Country: US (occurrence: US)
  Receive Date: 20130909
  Receipt Date: 20130909
  Transmission Date: 20140515
  Serious: No
  Sender: FDA-Public Use
  Company Number: US-BRISTOL-MYERS SQUIBB COMPANY-18926758

PATIENT
  Age: 21 Year
  Sex: Female
  Weight: 91.15 kg

DRUGS (2)
  1. ABILIFY [Suspect]
     Indication: AUTISM
     Dates: start: 2000, end: 2003
  2. ABILIFY [Suspect]
     Indication: ABNORMAL BEHAVIOUR
     Dates: start: 2000, end: 2003

REACTIONS (3)
  - Depression [Unknown]
  - Anger [Unknown]
  - Soliloquy [Unknown]
